FAERS Safety Report 24752744 (Version 1)
Quarter: 2024Q4

REPORT INFORMATION
  Report Type: Spontaneous
  Country: US (occurrence: None)
  Receive Date: 20241218
  Receipt Date: 20241218
  Transmission Date: 20250114
  Serious: Yes (Hospitalization, Other)
  Sender: Public
  Company Number: None

PATIENT
  Age: 58 Year
  Sex: Male

DRUGS (2)
  1. EPOPROSTENOL [Suspect]
     Active Substance: EPOPROSTENOL
     Indication: Pulmonary arterial hypertension
     Dosage: OTHER QUANTITY : 34 NG/KG/MIN ;?FREQUENCY : EVERY SECOND;?
     Route: 042
     Dates: start: 202208
  2. TRACLEER [Concomitant]
     Active Substance: BOSENTAN

REACTIONS (4)
  - Influenza like illness [None]
  - Nausea [None]
  - Diarrhoea [None]
  - Peripheral swelling [None]

NARRATIVE: CASE EVENT DATE: 20241208
